FAERS Safety Report 23226849 (Version 1)
Quarter: 2023Q4

REPORT INFORMATION
  Report Type: Spontaneous
  Country: RO (occurrence: None)
  Receive Date: 20231124
  Receipt Date: 20231124
  Transmission Date: 20240110
  Serious: Yes (Hospitalization)
  Sender: FDA-Public Use
  Company Number: 2023A264031

PATIENT
  Age: 78 Year
  Sex: Female

DRUGS (3)
  1. IMFINZI [Suspect]
     Active Substance: DURVALUMAB
     Indication: Small cell lung cancer extensive stage
     Route: 042
     Dates: start: 20220819, end: 202301
  2. ETOPOSIDE [Concomitant]
     Active Substance: ETOPOSIDE
     Dates: start: 20220819
  3. CARBOPATIN [Concomitant]
     Dates: start: 20220819

REACTIONS (3)
  - Autoimmune lung disease [Unknown]
  - Pneumonia [Unknown]
  - General physical health deterioration [Unknown]

NARRATIVE: CASE EVENT DATE: 20230101
